FAERS Safety Report 11100083 (Version 1)
Quarter: 2015Q2

REPORT INFORMATION
  Report Type: Spontaneous
  Country: CA (occurrence: CA)
  Receive Date: 20150508
  Receipt Date: 20150508
  Transmission Date: 20150821
  Serious: Yes (Death, Hospitalization)
  Sender: FDA-Public Use
  Company Number: CA-CELGENE-CAN-2015050828

PATIENT
  Sex: Male
  Weight: 105.3 kg

DRUGS (2)
  1. HYDROMORPHONE [Concomitant]
     Active Substance: HYDROMORPHONE
     Indication: PRODUCT USED FOR UNKNOWN INDICATION
     Route: 065
  2. ABRAXANE [Suspect]
     Active Substance: PACLITAXEL
     Indication: PANCREATIC CARCINOMA METASTATIC
     Route: 065
     Dates: start: 20140926, end: 20150324

REACTIONS (5)
  - General physical health deterioration [Unknown]
  - Pulmonary embolism [Unknown]
  - Pleural effusion [Unknown]
  - Death [Fatal]
  - Ascites [Unknown]

NARRATIVE: CASE EVENT DATE: 2015
